FAERS Safety Report 8590506-6 (Version None)
Quarter: 2012Q3

REPORT INFORMATION
  Report Type: 
  Country: None (occurrence: None)
  Receive Date: 20120813
  Receipt Date: 20120809
  Transmission Date: 20120928
  Serious: Yes (Death, Hospitalization, Other)
  Sender: FDA-Public Use
  Company Number: PHHY2012JP064466

PATIENT
  Sex: Male
  Weight: 64 kg

DRUGS (11)
  1. TAMSULOSIN HCL [Concomitant]
     Dosage: 0.2 MG, UNK
     Dates: start: 20100528, end: 20120720
  2. FAMOTIDINE [Concomitant]
     Dosage: 20 MG, UNK
     Route: 048
     Dates: end: 20120720
  3. DAIO-KANZO-TO [Concomitant]
     Dosage: 7.5 G, UNK
     Route: 048
     Dates: end: 20120720
  4. CELECOXIB [Suspect]
     Dosage: 100 MG, DAILY
     Dates: start: 20111219, end: 20120720
  5. LANTUS [Concomitant]
     Dosage: 4 IU, UNK
     Route: 058
     Dates: end: 20120720
  6. AFINITOR [Suspect]
     Indication: PANCREATIC NEUROENDOCRINE TUMOUR
     Dosage: 5 MG, DAILY
     Route: 048
     Dates: start: 20120416, end: 20120720
  7. ZYRTEC [Suspect]
     Dosage: 10 MG, DAILY
     Route: 048
     Dates: start: 20120507, end: 20120720
  8. SANDOSTATIN LAR [Concomitant]
     Indication: PANCREATIC NEUROENDOCRINE TUMOUR
     Route: 030
  9. NOVORAPID [Concomitant]
     Dosage: 12 IU, UNK
     Route: 058
     Dates: end: 20120720
  10. ANTEBATE [Concomitant]
     Dosage: UNK
     Route: 062
     Dates: end: 20120720
  11. ADONA [Concomitant]
     Dosage: 90 MG, UNK
     Route: 048
     Dates: start: 20090907, end: 20120720

REACTIONS (8)
  - DEPRESSED LEVEL OF CONSCIOUSNESS [None]
  - FATIGUE [None]
  - RENAL FAILURE [None]
  - PYREXIA [None]
  - ANURIA [None]
  - TACHYCARDIA [None]
  - MUSCULAR WEAKNESS [None]
  - SEPSIS [None]
